FAERS Safety Report 8214464-9 (Version None)
Quarter: 2012Q1

REPORT INFORMATION
  Report Type: 
  Country: None (occurrence: None)
  Receive Date: 20120316
  Receipt Date: 20120306
  Transmission Date: 20120608
  Serious: Yes (Life-Threatening)
  Sender: FDA-Public Use
  Company Number: AU-BAXTER-2012BH007069

PATIENT
  Age: 76 Year
  Sex: Male

DRUGS (2)
  1. GAMMAGARD LIQUID [Suspect]
     Route: 042
     Dates: start: 20120220, end: 20120220
  2. GAMMAGARD LIQUID [Suspect]
     Indication: PRODUCT USED FOR UNKNOWN INDICATION
     Route: 042
     Dates: start: 20120220, end: 20120220

REACTIONS (4)
  - DYSPNOEA [None]
  - PALPITATIONS [None]
  - FLUSHING [None]
  - CHILLS [None]
